FAERS Safety Report 18983123 (Version 2)
Quarter: 2023Q1

REPORT INFORMATION
  Report Type: Spontaneous
  Country: DE (occurrence: DE)
  Receive Date: 20210308
  Receipt Date: 20230113
  Transmission Date: 20230417
  Serious: Yes (Hospitalization)
  Sender: FDA-Public Use
  Company Number: DE-ADRED-06177-01

PATIENT
  Age: 78 Year
  Sex: Male

DRUGS (9)
  1. PACLITAXEL [Suspect]
     Active Substance: PACLITAXEL
     Indication: Product used for unknown indication
     Dosage: UNK (ZYKLUS 2 D1 AM 23102020)
     Route: 065
  2. CARBOPLATIN [Suspect]
     Active Substance: CARBOPLATIN
     Indication: Product used for unknown indication
     Dosage: UNK, (ZYKLUS 2 D1 AM 23 OCT 2020 )
     Route: 065
  3. ACTRAPID [Concomitant]
     Active Substance: INSULIN HUMAN
     Indication: Product used for unknown indication
     Dosage: 2 IU, TID
     Route: 058
  4. PANTOPRAZOLE [Concomitant]
     Active Substance: PANTOPRAZOLE
     Indication: Product used for unknown indication
     Dosage: 40 MG, QD (1-0-0-0)
     Route: 065
  5. MOVICOL [Concomitant]
     Active Substance: POLYETHYLENE GLYCOL 3350\POTASSIUM CHLORIDE\SODIUM BICARBONATE\SODIUM CHLORIDE
     Indication: Product used for unknown indication
     Dosage: UNK, QD (1-0-0-0, BEUTEL/GRANULAT)
     Route: 065
  6. CHROMIC CHLORIDE\CUPROUS CHLORIDE\FERRIC CHLORIDE\MANGANESE CHLORIDE\P [Concomitant]
     Active Substance: CHROMIC CHLORIDE\CUPROUS CHLORIDE\FERRIC CHLORIDE\MANGANESE CHLORIDE\POTASSIUM IODIDE\SODIUM FLUORID
     Indication: Product used for unknown indication
     Dosage: UNK UNK, QD (1-0-0-0)
     Route: 065
  7. CERNEVIT [Concomitant]
     Active Substance: VITAMINS
     Indication: Product used for unknown indication
     Dosage: UNK, QD (1-0-0-0)
     Route: 065
  8. ASPIRIN [Concomitant]
     Active Substance: ASPIRIN
     Indication: Product used for unknown indication
     Dosage: 100 MG, QD (0-1-0-0)
     Route: 065
  9. VITAMIN D [Concomitant]
     Active Substance: VITAMIN D NOS
     Indication: Product used for unknown indication
     Dosage: 1000 IU, QD
     Route: 065

REACTIONS (4)
  - General physical health deterioration [Unknown]
  - Hypoglycaemia [Unknown]
  - Hyperglycaemia [Unknown]
  - Asthenia [Unknown]
